FAERS Safety Report 4819183-4 (Version None)
Quarter: 2005Q4

REPORT INFORMATION
  Report Type: 
  Country: None (occurrence: None)
  Receive Date: 20051103
  Receipt Date: 20051024
  Transmission Date: 20060501
  Serious: Yes (Hospitalization)
  Sender: FDA-Public Use
  Company Number: US-GLAXOSMITHKLINE-A0579430A

PATIENT
  Age: 55 Year
  Sex: Male
  Weight: 95 kg

DRUGS (5)
  1. BLINDED TRIAL MEDICATION [Suspect]
     Indication: CHRONIC OBSTRUCTIVE PULMONARY DISEASE
     Route: 055
     Dates: start: 20050715
  2. ALBUTEROL [Suspect]
     Indication: CHRONIC OBSTRUCTIVE PULMONARY DISEASE
     Dosage: 90MCG AS REQUIRED
     Route: 055
     Dates: start: 19900101
  3. ARIPIPRAZOLE [Concomitant]
     Dates: start: 20050909
  4. COUMADIN [Concomitant]
     Dates: start: 20050924, end: 20051010
  5. NAPROSYN [Concomitant]
     Dates: start: 20050717

REACTIONS (3)
  - CHRONIC OBSTRUCTIVE PULMONARY DISEASE [None]
  - MALAISE [None]
  - OSTEONECROSIS [None]
